FAERS Safety Report 8987412 (Version 1)
Quarter: 2012Q4

REPORT INFORMATION
  Report Type: Report from Study
  Country: CL (occurrence: CL)
  Receive Date: 20121227
  Receipt Date: 20121227
  Transmission Date: 20130627
  Serious: Yes (Other)
  Sender: FDA-Public Use
  Company Number: CL-ROCHE-1156178

PATIENT
  Age: 57 Year
  Sex: Female
  Weight: 56 kg

DRUGS (5)
  1. CAPECITABINE [Suspect]
     Indication: COLON CANCER
     Route: 048
     Dates: start: 20120828, end: 20121109
  2. FERROUS FUMARATE [Concomitant]
     Indication: ANAEMIA
     Route: 048
     Dates: start: 1996
  3. ASCORBIC ACID [Concomitant]
     Indication: ANAEMIA
  4. FOLIC ACID [Concomitant]
     Indication: ANAEMIA
  5. CYANOCOBALAMIN [Concomitant]
     Indication: ANAEMIA

REACTIONS (5)
  - Anaemia [Not Recovered/Not Resolved]
  - Diarrhoea [Not Recovered/Not Resolved]
  - Vomiting [Recovered/Resolved]
  - Speech disorder [Not Recovered/Not Resolved]
  - Hypoaesthesia [Not Recovered/Not Resolved]
